FAERS Safety Report 16557487 (Version 1)
Quarter: 2019Q3

REPORT INFORMATION
  Report Type: Spontaneous
  Country: US (occurrence: US)
  Receive Date: 20190711
  Receipt Date: 20190711
  Transmission Date: 20191004
  Serious: Yes (Hospitalization, Other)
  Sender: FDA-Public Use
  Company Number: US-009507513-1907USA004005

PATIENT
  Age: 85 Year
  Sex: Female

DRUGS (11)
  1. FOLIC ACID. [Suspect]
     Active Substance: FOLIC ACID
     Dosage: 1 MILLIGRAM, 1 PER DAY
     Dates: start: 2011
  2. DORZOLAMIDE HYDROCHLORIDE. [Suspect]
     Active Substance: DORZOLAMIDE HYDROCHLORIDE
     Dosage: UNK
     Dates: start: 2017
  3. ZOCOR [Suspect]
     Active Substance: SIMVASTATIN
     Indication: BLOOD CHOLESTEROL
     Dosage: 20 MILLIGRAM, 1 PER DAY
     Dates: start: 2011
  4. POTASSIUM CHLORIDE. [Suspect]
     Active Substance: POTASSIUM CHLORIDE
     Dosage: 10 MILLIEQUIVALENT, 1 PER DAY
     Dates: start: 2009
  5. METHOTREXATE. [Suspect]
     Active Substance: METHOTREXATE
     Indication: RHEUMATOID ARTHRITIS
     Dosage: 2.5 MILLIGRAM, 8 TABS PER WEEK
     Dates: start: 2014
  6. LATANOPROST. [Suspect]
     Active Substance: LATANOPROST
     Dosage: UNK
     Dates: start: 2015
  7. OCUVITE [Suspect]
     Active Substance: VITAMINS
     Dosage: UNK
     Dates: start: 2015
  8. XELJANZ [Suspect]
     Active Substance: TOFACITINIB CITRATE
     Indication: RHEUMATOID ARTHRITIS
     Dosage: 10 MILLIGRAM, TWICE A DAY
     Dates: start: 2018
  9. FUROSEMIDE. [Suspect]
     Active Substance: FUROSEMIDE
     Indication: HYPERTENSION
     Dosage: 40 MILLIGRAM, 2 PER DAY
     Dates: start: 2009
  10. CYANOCOBALAMIN. [Suspect]
     Active Substance: CYANOCOBALAMIN
     Dosage: UNK
     Dates: start: 2009
  11. CENTRUM SILVER [Suspect]
     Active Substance: MINERALS\VITAMINS
     Dosage: UNK
     Dates: start: 2009

REACTIONS (5)
  - Cellulitis [Not Recovered/Not Resolved]
  - Rib fracture [Recovered/Resolved]
  - Rheumatoid arthritis [Recovered/Resolved]
  - Pain [Not Recovered/Not Resolved]
  - Fall [Recovered/Resolved]

NARRATIVE: CASE EVENT DATE: 201809
